FAERS Safety Report 6973077-7 (Version None)
Quarter: 2010Q3

REPORT INFORMATION
  Report Type: 
  Country: None (occurrence: None)
  Receive Date: 20100824
  Receipt Date: 20100519
  Transmission Date: 20110219
  Serious: No
  Sender: FDA-Public Use
  Company Number: 309073

PATIENT
  Age: 53 Year
  Sex: Female

DRUGS (3)
  1. VICTOZA [Suspect]
     Indication: TYPE 2 DIABETES MELLITUS
     Dosage: 0.6 MG, SINGLE, SUBCUTANEOUS ; 1.2 MG, SINGLE, SUBCUTANEOUS ; 1.8 MG, SINGLE, SUBCUTANEOUS
     Route: 058
     Dates: start: 20100516, end: 20100516
  2. VICTOZA [Suspect]
     Indication: TYPE 2 DIABETES MELLITUS
     Dosage: 0.6 MG, SINGLE, SUBCUTANEOUS ; 1.2 MG, SINGLE, SUBCUTANEOUS ; 1.8 MG, SINGLE, SUBCUTANEOUS
     Route: 058
     Dates: start: 20100517, end: 20100517
  3. VICTOZA [Suspect]
     Indication: TYPE 2 DIABETES MELLITUS
     Dosage: 0.6 MG, SINGLE, SUBCUTANEOUS ; 1.2 MG, SINGLE, SUBCUTANEOUS ; 1.8 MG, SINGLE, SUBCUTANEOUS
     Route: 058
     Dates: start: 20100518, end: 20100518

REACTIONS (4)
  - ACCIDENTAL OVERDOSE [None]
  - DYSGEUSIA [None]
  - INCREASED APPETITE [None]
  - NAUSEA [None]
